FAERS Safety Report 5055140-3 (Version None)
Quarter: 2006Q3

REPORT INFORMATION
  Report Type: 
  Country: None (occurrence: None)
  Receive Date: 20060714
  Receipt Date: 20060628
  Transmission Date: 20061208
  Serious: Yes (Other)
  Sender: FDA-Public Use
  Company Number: 2006BL002473

PATIENT
  Age: 68 Year
  Sex: Female

DRUGS (4)
  1. FLUORESCEIN SODIUM AND BENOXINATE HYDROCHLORIDE OPTHALMIC SOLUTION [Suspect]
     Indication: OPHTHALMOLOGICAL EXAMINATION
     Dosage: 1 TIME;OPHTHALMIC
     Route: 047
     Dates: start: 20060209, end: 20060209
  2. TROPICAMIDE [Suspect]
     Indication: OPHTHALMOLOGICAL EXAMINATION
     Dosage: 1 TIME;OPHTHALMIC
     Route: 047
     Dates: start: 20060209, end: 20060209
  3. PHENYLEPHRINE [Suspect]
     Indication: OPHTHALMOLOGICAL EXAMINATION
     Dosage: 1 TIME;OPHTHALMIC
     Route: 047
     Dates: start: 20060209, end: 20060209
  4. THYROXINE SODIUM [Concomitant]

REACTIONS (10)
  - DRUG HYPERSENSITIVITY [None]
  - EAR PAIN [None]
  - EYE SWELLING [None]
  - FACIAL PALSY [None]
  - HEADACHE [None]
  - LACRIMATION INCREASED [None]
  - NASAL CONGESTION [None]
  - NECK PAIN [None]
  - SWELLING FACE [None]
  - VISUAL ACUITY REDUCED [None]
